FAERS Safety Report 6016828-0 (Version None)
Quarter: 2008Q4

REPORT INFORMATION
  Report Type: 
  Country: None (occurrence: None)
  Receive Date: 20081219
  Receipt Date: 20081211
  Transmission Date: 20090506
  Serious: Yes (Other)
  Sender: FDA-Public Use
  Company Number: 1000001264

PATIENT
  Age: 59 Year
  Sex: Female
  Weight: 50.8 kg

DRUGS (6)
  1. MEMANTINE HCL [Suspect]
     Indication: DEMENTIA ALZHEIMER'S TYPE
     Dosage: 20 MG (20 MG, 1 IN 1 D), ORAL
     Route: 048
     Dates: start: 20050827, end: 20060828
  2. MAGNESIUM OXIDE [Suspect]
     Indication: CONSTIPATION
     Dosage: 3 GM (3 MG), ORAL
     Route: 048
  3. ATORVASTATIN CALCIUM [Suspect]
     Indication: HYPERLIPIDAEMIA
     Dosage: 10 MG (10 MG, ORAL)
     Route: 048
     Dates: end: 20080828
  4. DIMETHICONE [Suspect]
     Indication: ABDOMINAL PAIN
     Dosage: 120 MG (120 MG), ORAL
     Route: 048
     Dates: end: 20080828
  5. LACTOSE [Suspect]
     Indication: INSOMNIA
     Dosage: 1 GM (1 GM), ORAL
     Route: 048
     Dates: start: 20080124
  6. PANTETHINE [Suspect]
     Indication: CONSTIPATION
     Dosage: 2 GM (2 GM), ORAL
     Route: 048

REACTIONS (2)
  - GASTRIC CANCER [None]
  - WEIGHT INCREASED [None]
